FAERS Safety Report 9203247 (Version 1)
Quarter: 2013Q1

REPORT INFORMATION
  Report Type: Spontaneous
  Country: US (occurrence: None)
  Receive Date: 20120709
  Receipt Date: 20120709
  Transmission Date: 20140127
  Serious: Yes (Other)
  Sender: FDA-Public Use
  Company Number: PHEH2011US08103

PATIENT
  Age: 52 Year
  Sex: Male
  Weight: 72.3 kg

DRUGS (2)
  1. GLEEVEC [Suspect]
     Indication: GASTROINTESTINAL STROMAL TUMOUR
     Route: 048
     Dates: start: 20110315
  2. VITAMIN B12 (CYANOCOBALMIN) [Concomitant]

REACTIONS (5)
  - Neoplasm progression [None]
  - Blood pressure decreased [None]
  - Haemoglobin decreased [None]
  - Blood alkaline phosphatase increased [None]
  - Neoplasm malignant [None]
